FAERS Safety Report 10285293 (Version 2)
Quarter: 2014Q4

REPORT INFORMATION
  Report Type: Spontaneous
  Country: US (occurrence: US)
  Receive Date: 20140708
  Receipt Date: 20141203
  Transmission Date: 20150528
  Serious: Yes (Other)
  Sender: FDA-Public Use
  Company Number: US-FRI-1000068657

PATIENT
  Age: 65 Year
  Sex: Female
  Weight: 69.4 kg

DRUGS (15)
  1. LINZESS [Suspect]
     Active Substance: LINACLOTIDE
     Indication: CONSTIPATION
     Dosage: 1/2 CAPSULE
     Route: 048
     Dates: start: 201402
  2. CALCIUM PYRUVATE [Concomitant]
     Dosage: 750 MG
     Route: 048
  3. VENTOLIN HFA [Concomitant]
     Active Substance: ALBUTEROL SULFATE
     Dosage: 2-4 PUFFS EVERY 4 HOURS AS NEEDED
     Route: 055
  4. ADVIL LIQUI-GEL [Concomitant]
     Dosage: 400 MG
     Route: 048
  5. ZOLPIDEM [Concomitant]
     Active Substance: ZOLPIDEM\ZOLPIDEM TARTRATE
     Indication: INSOMNIA
     Dosage: TAKE 0.5 TO 1- 5 MG TABLET DAILY AT BEDTIME AS NEEDED
     Route: 048
  6. CLONAZEPAM. [Concomitant]
     Active Substance: CLONAZEPAM
     Indication: INSOMNIA
     Dosage: TAKE 1-2 TABLETS AT BEDTIME
  7. CYANOCOBALAMIN. [Concomitant]
     Active Substance: CYANOCOBALAMIN
     Dosage: WEEKLY
  8. SIMVASTATIN. [Concomitant]
     Active Substance: SIMVASTATIN
     Indication: BLOOD CHOLESTEROL INCREASED
     Dosage: 10 MG
     Route: 048
  9. FIBERCON [Concomitant]
     Active Substance: CALCIUM POLYCARBOPHIL
     Dosage: 1250 MG
     Route: 048
  10. LINZESS [Suspect]
     Active Substance: LINACLOTIDE
     Indication: CONSTIPATION
     Dosage: 145 MCG
     Route: 048
     Dates: start: 20140218, end: 201402
  11. MELATONIN [Concomitant]
     Active Substance: MELATONIN
     Indication: INSOMNIA
  12. STOOL SOFTENER [Concomitant]
     Active Substance: DOCUSATE CALCIUM
     Dosage: 200 MG
     Route: 048
  13. MVI [Concomitant]
     Active Substance: VITAMINS
     Dosage: 1 TABLET DAILY
     Route: 048
  14. PYRIDOXINE [Concomitant]
     Active Substance: PYRIDOXINE
     Dosage: WEEKLY
  15. VITAMIN D3 [Concomitant]
     Active Substance: CHOLECALCIFEROL
     Dosage: 2000 UNITS
     Route: 048

REACTIONS (3)
  - Haematochezia [Recovered/Resolved]
  - Intentional product misuse [Not Recovered/Not Resolved]
  - Diarrhoea [Unknown]

NARRATIVE: CASE EVENT DATE: 201402
